FAERS Safety Report 12569765 (Version 2)
Quarter: 2016Q3

REPORT INFORMATION
  Report Type: Report from Study
  Country: FR (occurrence: FR)
  Receive Date: 20160719
  Receipt Date: 20160729
  Transmission Date: 20161109
  Serious: Yes (Hospitalization)
  Sender: FDA-Public Use
  Company Number: FR-CELGENEUS-FRA-2016071331

PATIENT
  Age: 66 Year
  Sex: Male
  Weight: 65 kg

DRUGS (10)
  1. PREDNISONE. [Suspect]
     Active Substance: PREDNISONE
     Indication: T-CELL LYMPHOMA
     Dosage: 1.4 MILLIGRAM
     Route: 048
     Dates: start: 20160622
  2. FILGASTRIM [Concomitant]
     Active Substance: FILGRASTIM
     Dosage: MU
     Route: 058
  3. FILGASTRIM [Concomitant]
     Active Substance: FILGRASTIM
     Indication: LEUKOPENIA
     Route: 065
  4. VINCRISTINE [Suspect]
     Active Substance: VINCRISTINE
     Indication: T-CELL LYMPHOMA
     Dosage: 50 MILLIGRAM/SQ. METER
     Route: 041
     Dates: start: 20160622
  5. PRIMPERAN [Concomitant]
     Active Substance: METOCLOPRAMIDE HYDROCHLORIDE
     Indication: NAUSEA
     Route: 065
  6. ZOPHREN [Concomitant]
     Active Substance: ONDANSETRON
     Indication: NAUSEA
     Dosage: 40 MILLIGRAM/SQ. METER
     Route: 065
  7. ROMIDEPSIN [Suspect]
     Active Substance: ROMIDEPSIN
     Route: 065
     Dates: start: 20160613
  8. ROMIDEPSIN [Suspect]
     Active Substance: ROMIDEPSIN
     Indication: T-CELL LYMPHOMA
     Route: 065
     Dates: start: 20160622, end: 20160629
  9. CYCLOPHOSPHAMIDE. [Suspect]
     Active Substance: CYCLOPHOSPHAMIDE
     Indication: T-CELL LYMPHOMA
     Route: 041
     Dates: start: 20160622
  10. DOXORUBICIN [Suspect]
     Active Substance: DOXORUBICIN
     Indication: T-CELL LYMPHOMA
     Dosage: 750 MILLIGRAM/SQ. METER
     Route: 041
     Dates: start: 20160622

REACTIONS (1)
  - General physical health deterioration [Recovered/Resolved with Sequelae]

NARRATIVE: CASE EVENT DATE: 20160623
